FAERS Safety Report 16059718 (Version 5)
Quarter: 2019Q2

REPORT INFORMATION
  Report Type: Spontaneous
  Country: US (occurrence: US)
  Receive Date: 20190311
  Receipt Date: 20190624
  Transmission Date: 20190711
  Serious: Yes (Hospitalization)
  Sender: FDA-Public Use
  Company Number: US-ACTELION-A-NJ2019-187503

PATIENT
  Age: 56 Year
  Sex: Female
  Weight: 154.65 kg

DRUGS (4)
  1. DILTIAZEM. [Concomitant]
     Active Substance: DILTIAZEM
  2. ADEMPAS [Concomitant]
     Active Substance: RIOCIGUAT
  3. ELIQUIS [Concomitant]
     Active Substance: APIXABAN
  4. UPTRAVI [Suspect]
     Active Substance: SELEXIPAG
     Indication: PULMONARY ARTERIAL HYPERTENSION
     Dosage: 200 MCG, BID
     Route: 048

REACTIONS (14)
  - Dyspnoea [Unknown]
  - Pulmonary oedema [Unknown]
  - Weight decreased [Unknown]
  - Emergency care [Unknown]
  - Atrial fibrillation [Unknown]
  - Oxygen therapy [Unknown]
  - Fluid retention [Unknown]
  - Decreased appetite [Unknown]
  - Headache [Unknown]
  - Hospitalisation [Not Recovered/Not Resolved]
  - Productive cough [Unknown]
  - Pericardial effusion [Unknown]
  - Dyspnoea exertional [Unknown]
  - Cardiac failure congestive [Unknown]

NARRATIVE: CASE EVENT DATE: 20190314
